FAERS Safety Report 22371931 (Version 1)
Quarter: 2023Q2

REPORT INFORMATION
  Report Type: Spontaneous
  Country: US (occurrence: US)
  Receive Date: 20230526
  Receipt Date: 20230526
  Transmission Date: 20230722
  Serious: Yes (Other)
  Sender: FDA-Public Use
  Company Number: US-MYLANLABS-2023M1053284

PATIENT
  Age: 40 Year
  Sex: Male

DRUGS (7)
  1. CABERGOLINE [Suspect]
     Active Substance: CABERGOLINE
     Indication: Prolactin-producing pituitary tumour
     Dosage: 0.25 MILLIGRAM, BID
     Route: 065
  2. CABERGOLINE [Suspect]
     Active Substance: CABERGOLINE
     Dosage: 0.5 MILLIGRAM, BID
     Route: 065
  3. CABERGOLINE [Suspect]
     Active Substance: CABERGOLINE
     Dosage: 0.75 MILLIGRAM, BIWEEKLY
     Route: 065
  4. HYDROCORTISONE [Concomitant]
     Active Substance: HYDROCORTISONE
     Indication: Central hypothyroidism
     Dosage: 10 MILLIGRAM, BID
     Route: 065
  5. HYDROCORTISONE [Concomitant]
     Active Substance: HYDROCORTISONE
     Indication: Prophylaxis
  6. LEVOTHYROXINE [Concomitant]
     Active Substance: LEVOTHYROXINE
     Indication: Central hypothyroidism
     Dosage: 50 MICROGRAM, QD
     Route: 065
  7. LEVOTHYROXINE [Concomitant]
     Active Substance: LEVOTHYROXINE
     Indication: Prophylaxis

REACTIONS (1)
  - Generalised tonic-clonic seizure [Recovered/Resolved]
